FAERS Safety Report 8436793-6 (Version None)
Quarter: 2012Q2

REPORT INFORMATION
  Report Type: 
  Country: None (occurrence: None)
  Receive Date: 20120614
  Receipt Date: 20120606
  Transmission Date: 20120825
  Serious: Yes (Hospitalization)
  Sender: FDA-Public Use
  Company Number: JP-ALEXION-A201201140

PATIENT
  Age: 81 Year
  Sex: Female

DRUGS (8)
  1. SOLIRIS [Suspect]
     Indication: PAROXYSMAL NOCTURNAL HAEMOGLOBINURIA
     Dosage: 900 MG, Q2W
     Route: 042
     Dates: start: 20111221, end: 20120126
  2. PRIMOBOLAN-DEPOT INJ [Concomitant]
     Dosage: 15 MG, QD
     Dates: start: 20081101
  3. BLOOD TRANSFUSION, AUXILIARY PRODUCTS [Concomitant]
     Dosage: 26 UNITS X12
     Dates: start: 20101201, end: 20111101
  4. CEPHARANTHINE [Concomitant]
     Dosage: 0.6 G, QD
     Dates: start: 20081101
  5. ALFACALCIDOL [Concomitant]
     Dosage: 1 MG, QD
     Dates: start: 20081101
  6. CONIEL [Concomitant]
     Dosage: 4 MG, QD
  7. VITAMIN K2 [Concomitant]
     Dosage: 4.5 MG
     Dates: start: 20081101
  8. MICARDIS [Concomitant]
     Dosage: 20 MG, QD

REACTIONS (3)
  - SEPSIS [None]
  - PLATELET COUNT DECREASED [None]
  - NEUTROPHIL COUNT DECREASED [None]
